FAERS Safety Report 21055270 (Version 1)
Quarter: 2022Q3

REPORT INFORMATION
  Report Type: Spontaneous
  Country: US (occurrence: US)
  Receive Date: 20220708
  Receipt Date: 20220708
  Transmission Date: 20221027
  Serious: No
  Sender: FDA-Public Use
  Company Number: US-AMGEN-USASP2022110127

PATIENT
  Sex: Female

DRUGS (2)
  1. ARANESP [Suspect]
     Active Substance: DARBEPOETIN ALFA
     Indication: Haemoglobin decreased
     Dosage: 200 MICROGRAM (EVERY FIVE TO SIX WEEKS)
     Route: 065
  2. ARANESP [Suspect]
     Active Substance: DARBEPOETIN ALFA
     Indication: Chronic kidney disease

REACTIONS (2)
  - Product storage error [Unknown]
  - Off label use [Unknown]
